FAERS Safety Report 6599620-8 (Version None)
Quarter: 2010Q1

REPORT INFORMATION
  Report Type: 
  Country: None (occurrence: None)
  Receive Date: 20100224
  Receipt Date: 20100215
  Transmission Date: 20100710
  Serious: Yes (Hospitalization)
  Sender: FDA-Public Use
  Company Number: DE-JNJFOC-20100206682

PATIENT
  Age: 28 Year
  Sex: Male

DRUGS (7)
  1. IBUPROFEN [Suspect]
     Route: 048
  2. IBUPROFEN [Suspect]
     Indication: INFLUENZA
     Route: 048
  3. PARACETAMOL [Suspect]
     Route: 048
  4. PARACETAMOL [Suspect]
     Indication: INFLUENZA
     Route: 048
  5. REACTINE [Suspect]
     Indication: ALLERGY TO ANIMAL
     Route: 048
  6. GRIPPOCAPS [Suspect]
     Indication: INFLUENZA
  7. SYMBICORT [Concomitant]
     Route: 045

REACTIONS (1)
  - HEPATITIS ACUTE [None]
